APPROVED DRUG PRODUCT: TEMAZEPAM
Active Ingredient: TEMAZEPAM
Strength: 22.5MG
Dosage Form/Route: CAPSULE;ORAL
Application: A071457 | Product #003 | TE Code: AB
Applicant: NOVEL LABORATORIES INC
Approved: Jun 22, 2012 | RLD: No | RS: No | Type: RX